FAERS Safety Report 6102561-3 (Version None)
Quarter: 2009Q1

REPORT INFORMATION
  Report Type: 
  Country: None (occurrence: None)
  Receive Date: 20090304
  Receipt Date: 20080826
  Transmission Date: 20090719
  Serious: No
  Sender: FDA-Public Use
  Company Number: A0743760A

PATIENT
  Sex: Male

DRUGS (6)
  1. REQUIP [Suspect]
     Indication: PARKINSON'S DISEASE
     Dosage: 3MG THREE TIMES PER DAY
     Route: 048
  2. SINEMET [Suspect]
     Indication: PARKINSON'S DISEASE
     Dosage: 1TAB THREE TIMES PER DAY
     Route: 048
  3. LIPITOR [Concomitant]
  4. VESICARE [Concomitant]
     Route: 048
  5. COQ10 [Concomitant]
  6. TRUSOPT [Concomitant]

REACTIONS (1)
  - SOMNOLENCE [None]
